FAERS Safety Report 16041094 (Version 1)
Quarter: 2019Q1

REPORT INFORMATION
  Report Type: Spontaneous
  Country: DE (occurrence: DE)
  Receive Date: 20190306
  Receipt Date: 20190306
  Transmission Date: 20190418
  Serious: Yes (Death, Other)
  Sender: FDA-Public Use
  Company Number: DE-ACCORD-043382

PATIENT
  Age: 76 Year
  Sex: Female

DRUGS (11)
  1. PANTOPRAZOLE [Concomitant]
     Active Substance: PANTOPRAZOLE
  2. VENLAFAXINE/VENLAFAXINE HYDROCHLORIDE [Suspect]
     Active Substance: VENLAFAXINE HYDROCHLORIDE
     Indication: ANTIDEPRESSANT THERAPY
     Dosage: ALSO RECEIVED 75 MG AND 112.5 FROM AN UNKNOWN.
  3. PREDNISOLONE. [Concomitant]
     Active Substance: PREDNISOLONE
  4. LORAZEPAM. [Suspect]
     Active Substance: LORAZEPAM
     Indication: DEPRESSION
     Dosage: ALSO RECEIVED 1 MG, 0.75 MG, 0.5 MG, 0.25 MG
  5. METHOTREXATE. [Concomitant]
     Active Substance: METHOTREXATE
     Indication: RHEUMATOID ARTHRITIS
  6. OLANZAPINE. [Suspect]
     Active Substance: OLANZAPINE
     Indication: INSOMNIA
     Dosage: 5 MG AT NIGHT, ALSO RECEIVED 2.5 MG
  7. AMITRIPTYLINE [Suspect]
     Active Substance: AMITRIPTYLINE
     Indication: PAIN
  8. CALCIUM CARBONATE/CALCIUM LACTOGLUCONATE [Concomitant]
  9. FESOTERODINE [Concomitant]
     Active Substance: FESOTERODINE
  10. PRADAXA [Suspect]
     Active Substance: DABIGATRAN ETEXILATE MESYLATE
     Indication: DEEP VEIN THROMBOSIS
     Route: 048
  11. COLECALCIFEROL [Concomitant]
     Active Substance: CHOLECALCIFEROL
     Dosage: ONCE/WEEK

REACTIONS (3)
  - Dry mouth [Unknown]
  - Seizure [Fatal]
  - Drug intolerance [Unknown]
